FAERS Safety Report 4364043-9 (Version None)
Quarter: 2004Q2

REPORT INFORMATION
  Report Type: 
  Country: None (occurrence: None)
  Receive Date: 20040520
  Receipt Date: 20040520
  Transmission Date: 20050107
  Serious: Yes (Other)
  Sender: FDA-Public Use
  Company Number: None

PATIENT
  Age: 44 Year
  Sex: Male
  Weight: 77.1115 kg

DRUGS (9)
  1. LUVOX [Suspect]
     Indication: MAJOR DEPRESSION
     Dosage: 25 MG DAILY ORAL
     Route: 048
     Dates: start: 20040504, end: 20040517
  2. LUVOX [Suspect]
     Indication: OBSESSIVE-COMPULSIVE DISORDER
     Dosage: 25 MG DAILY ORAL
     Route: 048
     Dates: start: 20040504, end: 20040517
  3. CLONAZEPAM [Concomitant]
  4. LITHIUM CARBONATE [Concomitant]
  5. VIRACEPT [Concomitant]
  6. ZERIT [Concomitant]
  7. VIDEX [Concomitant]
  8. LIPITOR [Concomitant]
  9. CARDURA [Concomitant]

REACTIONS (4)
  - ANGER [None]
  - HOSTILITY [None]
  - INTENTIONAL SELF-INJURY [None]
  - SOMNOLENCE [None]
